FAERS Safety Report 11094581 (Version 2)
Quarter: 2015Q3

REPORT INFORMATION
  Report Type: Spontaneous
  Country: US (occurrence: US)
  Receive Date: 20150506
  Receipt Date: 20150708
  Transmission Date: 20151125
  Serious: Yes (Other)
  Sender: FDA-Public Use
  Company Number: US-PFIZER INC-2015153018

PATIENT
  Age: 49 Year
  Sex: Female
  Weight: 91 kg

DRUGS (1)
  1. XELJANZ [Suspect]
     Active Substance: TOFACITINIB CITRATE
     Indication: RHEUMATOID ARTHRITIS
     Dosage: 5 MG, 2X/DAY
     Route: 048
     Dates: start: 20150425, end: 201506

REACTIONS (5)
  - Somnolence [Unknown]
  - Urinary bladder haemorrhage [Recovering/Resolving]
  - Urinary tract infection [Recovering/Resolving]
  - Rhinorrhoea [Recovering/Resolving]
  - Laboratory test abnormal [Recovering/Resolving]

NARRATIVE: CASE EVENT DATE: 20150425
